FAERS Safety Report 9920772 (Version 1)
Quarter: 2014Q1

REPORT INFORMATION
  Report Type: Report from Study
  Country: US (occurrence: US)
  Receive Date: 20140224
  Receipt Date: 20140224
  Transmission Date: 20141002
  Serious: Yes (Other)
  Sender: FDA-Public Use
  Company Number: US-BAXTER-2014BAX008754

PATIENT
  Sex: 0

DRUGS (4)
  1. FEIBA NF [Suspect]
     Indication: COAGULOPATHY
     Dosage: BEFORE CHEST CLOSURE
     Route: 065
  2. AMINOCAPROIC ACID [Concomitant]
     Indication: PRODUCT USED FOR UNKNOWN INDICATION
     Dosage: 5G LOADING DOSE
     Route: 065
  3. AMINOCAPROIC ACID [Concomitant]
     Dosage: INFUSION
     Route: 065
  4. HEPARIN [Concomitant]
     Indication: PRODUCT USED FOR UNKNOWN INDICATION
     Dosage: 300-400 IU/KG

REACTIONS (1)
  - Deep vein thrombosis [Unknown]
